FAERS Safety Report 7200854-X (Version None)
Quarter: 2010Q4

REPORT INFORMATION
  Report Type: 
  Country: None (occurrence: None)
  Receive Date: 20101228
  Receipt Date: 20101221
  Transmission Date: 20110411
  Serious: Yes (Hospitalization)
  Sender: FDA-Public Use
  Company Number: IT-BAXTER-2010BH030775

PATIENT
  Age: 10 Year
  Sex: Male

DRUGS (3)
  1. UROMITEXAN BAXTER [Suspect]
     Indication: BURKITT'S LYMPHOMA
     Route: 042
     Dates: start: 20100419, end: 20100423
  2. IFOSFAMIDE [Suspect]
     Indication: BURKITT'S LYMPHOMA
     Route: 042
     Dates: start: 20100419, end: 20100423
  3. ETOPOSIDE [Suspect]
     Indication: BURKITT'S LYMPHOMA
     Route: 042
     Dates: start: 20100422, end: 20100423

REACTIONS (3)
  - HEADACHE [None]
  - ORAL PAIN [None]
  - OROPHARYNGEAL PAIN [None]
